APPROVED DRUG PRODUCT: HALCINONIDE
Active Ingredient: HALCINONIDE
Strength: 0.1%
Dosage Form/Route: CREAM;TOPICAL
Application: A211027 | Product #001 | TE Code: AB
Applicant: MYLAN PHARMACEUTICALS INC
Approved: Aug 12, 2019 | RLD: No | RS: No | Type: RX